FAERS Safety Report 5026009-5 (Version None)
Quarter: 2006Q2

REPORT INFORMATION
  Report Type: 
  Country: None (occurrence: None)
  Receive Date: 20060614
  Receipt Date: 20020621
  Transmission Date: 20061013
  Serious: Yes (Other)
  Sender: FDA-Public Use
  Company Number: US-ROCHE-315806

PATIENT
  Age: 57 Year
  Sex: Male
  Weight: 92.5 kg

DRUGS (7)
  1. PEG-INTERFERON ALFA 2A (RO 25-8310) [Suspect]
     Route: 058
     Dates: start: 20020318
  2. RIBAVIRIN [Suspect]
     Route: 048
     Dates: start: 20020318
  3. TRAZODONE HCL [Concomitant]
  4. HYDROCHLOROTHIAZIDE [Concomitant]
     Dates: end: 20060329
  5. LISINOPRIL [Concomitant]
     Dates: end: 20060329
  6. TAMSULOSIN HCL [Concomitant]
  7. METOPROLOL [Concomitant]

REACTIONS (3)
  - HYPERHIDROSIS [None]
  - MUSCLE SPASMS [None]
  - SYNCOPE [None]
